FAERS Safety Report 4341022-9 (Version None)
Quarter: 2004Q2

REPORT INFORMATION
  Report Type: 
  Country: None (occurrence: None)
  Receive Date: 20040413
  Receipt Date: 20040331
  Transmission Date: 20050107
  Serious: Yes (Hospitalization)
  Sender: FDA-Public Use
  Company Number: 2003115272

PATIENT
  Age: 47 Year
  Sex: Female
  Weight: 45 kg

DRUGS (2)
  1. ATARAX [Suspect]
     Indication: SEDATION
     Dosage: 25 MG (ONCE), INTRAVENOUS
     Route: 042
     Dates: start: 20031022, end: 20031022
  2. PENTAZOCINE LACTATE [Suspect]
     Indication: SEDATION
     Dosage: 15 MG (ONCE), INTRAVENOUS
     Route: 042
     Dates: start: 20031022, end: 20031022

REACTIONS (6)
  - ERYTHEMA [None]
  - FEELING COLD [None]
  - HYPOAESTHESIA [None]
  - INJECTION SITE REACTION [None]
  - MUSCULAR WEAKNESS [None]
  - THROMBOPHLEBITIS [None]
